FAERS Safety Report 9563481 (Version 1)
Quarter: 2013Q1

REPORT INFORMATION
  Report Type: Spontaneous
  Country: US (occurrence: None)
  Receive Date: 20121218
  Receipt Date: 20121218
  Transmission Date: 20140127
  Serious: Yes (Other)
  Sender: FDA-Public Use
  Company Number: PHEH2012US006163

PATIENT
  Sex: 0

DRUGS (2)
  1. ZOMETA (ZOLEDRONATE) UNKNOWN [Suspect]
     Dosage: TWICE A YEAR?
  2. AORMASIN (EXEMESTANE) [Concomitant]

REACTIONS (2)
  - Metastases to bone [None]
  - Bone pain [None]
